FAERS Safety Report 9292587 (Version 2)
Quarter: 2013Q3

REPORT INFORMATION
  Report Type: Report from Study
  Country: CA (occurrence: CA)
  Receive Date: 20130516
  Receipt Date: 20130712
  Transmission Date: 20140515
  Serious: Yes (Hospitalization)
  Sender: FDA-Public Use
  Company Number: CA-JNJFOC-20130506366

PATIENT
  Age: 49 Year
  Sex: Male
  Weight: 59.2 kg

DRUGS (6)
  1. REMICADE [Suspect]
     Indication: ANKYLOSING SPONDYLITIS
     Route: 042
     Dates: start: 20050109
  2. CELEBREX [Concomitant]
     Route: 065
  3. PANTOLOC [Concomitant]
     Route: 065
  4. IMURAN [Concomitant]
     Route: 065
  5. IRON [Concomitant]
     Route: 065
  6. TYLENOL 3 [Concomitant]
     Route: 065

REACTIONS (1)
  - Hip arthroplasty [Recovered/Resolved]
